FAERS Safety Report 13274269 (Version 3)
Quarter: 2017Q1

REPORT INFORMATION
  Report Type: Spontaneous
  Country: RS (occurrence: RS)
  Receive Date: 20170227
  Receipt Date: 20170314
  Transmission Date: 20170428
  Serious: Yes (Death, Hospitalization, Other)
  Sender: FDA-Public Use
  Company Number: RS-MYLANLABS-2017M1012214

PATIENT
  Age: 26 Year
  Sex: Female

DRUGS (7)
  1. HALOPERIDOL. [Suspect]
     Active Substance: HALOPERIDOL
     Indication: BRIEF PSYCHOTIC DISORDER, WITH POSTPARTUM ONSET
  2. LORAZEPAM. [Suspect]
     Active Substance: LORAZEPAM
     Indication: BRIEF PSYCHOTIC DISORDER, WITH POSTPARTUM ONSET
  3. DIAZEPAM. [Suspect]
     Active Substance: DIAZEPAM
     Indication: BRIEF PSYCHOTIC DISORDER, WITH POSTPARTUM ONSET
  4. LAMOTRIGINE. [Suspect]
     Active Substance: LAMOTRIGINE
     Indication: BRIEF PSYCHOTIC DISORDER, WITH POSTPARTUM ONSET
     Dosage: UNK
  5. TEMAZEPAM. [Suspect]
     Active Substance: TEMAZEPAM
     Indication: BRIEF PSYCHOTIC DISORDER, WITH POSTPARTUM ONSET
  6. CLOZAPINE. [Suspect]
     Active Substance: CLOZAPINE
     Indication: BRIEF PSYCHOTIC DISORDER, WITH POSTPARTUM ONSET
  7. RISPERIDONE. [Suspect]
     Active Substance: RISPERIDONE
     Indication: BRIEF PSYCHOTIC DISORDER, WITH POSTPARTUM ONSET

REACTIONS (9)
  - Hallucinations, mixed [Unknown]
  - Blood glucose increased [Unknown]
  - Mental impairment [Unknown]
  - Depressed mood [Unknown]
  - Mean cell volume increased [Unknown]
  - Pulmonary embolism [Fatal]
  - Blood cholesterol increased [Unknown]
  - Product use issue [Unknown]
  - Sudden death [Fatal]
